FAERS Safety Report 7051643 (Version 4)
Quarter: 2013Q1

REPORT INFORMATION
  Report Type: Spontaneous
  Country: JP (occurrence: None)
  Receive Date: 20090706
  Receipt Date: 20130226
  Transmission Date: 20140127
  Serious: Yes (Death, Hospitalization, Other)
  Sender: FDA-Public Use
  Company Number: 2008JP002329

PATIENT
  Age: 58 Year
  Sex: Male
  Weight: 70 kg

DRUGS (35)
  1. PROGRAF (TACROLIMUS) CAPSULE [Suspect]
     Indication: LUPUS NEPHRITIS
     Dosage: UID
     Route: 048
     Dates: start: 20110518
  2. PROGRAF (TACROLIMUS) CAPSULE [Suspect]
     Indication: RHEUMATOID ARTHRITIS
     Dosage: UID
     Route: 048
     Dates: start: 20110518
  3. PREDNISOLONE [Suspect]
     Indication: LUPUS NEPHRITIS
     Route: 048
     Dates: end: 20071211
  4. PREDNISOLONE [Suspect]
     Indication: RHEUMATOID ARTHRITIS
     Route: 048
     Dates: end: 20071211
  5. RHEUMATREX [Suspect]
     Indication: LUPUS NEPHRITIS
     Dosage: 6 MG, WEEKLY, ORAL, 8 MG, WEEKLY, ORAL, 10 MG, WEEKLY, ORAL, 12 MG, WEEKLY, ORAL
     Route: 048
     Dates: start: 20071128, end: 20071211
  6. RHEUMATREX [Suspect]
     Indication: RHEUMATOID ARTHRITIS
     Dosage: 6 MG, WEEKLY, ORAL, 8 MG, WEEKLY, ORAL, 10 MG, WEEKLY, ORAL, 12 MG, WEEKLY, ORAL
     Route: 048
     Dates: start: 20071128, end: 20071211
  7. ENBREL [Suspect]
     Indication: RHEUMATOID ARTHRITIS
     Dosage: SUBCUTANEOUS
     Route: 058
     Dates: start: 20081006, end: 20090114
  8. ENBREL [Suspect]
     Indication: LUPUS NEPHRITIS
     Dosage: SUBCUTANEOUS
     Route: 058
     Dates: start: 20081006, end: 20090114
  9. ASPIRIN [Concomitant]
  10. SELBEX (TEPRENONE) PER ORAL NOS [Concomitant]
  11. JUVELA NICOTINATE (TOCOPHERYL NICOTINATE) PER ORAL NOS [Concomitant]
  12. FOLIC ACID [Concomitant]
  13. ANPLAG (SARPOGRELATE HYDROCHLORIDE) PER ORAL NOS [Concomitant]
  14. OPALMON (LIMAPROST) PER ORAL NOS [Concomitant]
  15. MUCODYNE (CARBOCISTEINE) PER ORAL NOS [Concomitant]
  16. GARENOXACIN (GARENOXACIN) PER ORAL NOS [Concomitant]
  17. OMEPRAL PER ORAL NOS [Concomitant]
  18. SELTOUCH (FELBINAC) [Concomitant]
  19. RYSMON TG (TIMOLOL MALEATE) EYE DROP [Concomitant]
  20. TRAVATAN Z (TRAVOPROST) EYE DROP [Concomitant]
  21. AZOPT (BRINZOLAMIDE) EYE DROP [Concomitant]
  22. ITRACONAZOLE [Concomitant]
  23. PARIET (RABEPRAZOLE SODIUM) [Concomitant]
  24. BERASUS (BERAPROST SODIUM) [Concomitant]
  25. LYRICA (PREGABALIN) [Concomitant]
  26. LASIX [Concomitant]
  27. SODIUM BICARBONATE (SODIUM BICARBONATE) [Concomitant]
  28. MILLS (GLYCERYL TRINITRATE) [Concomitant]
  29. TAKEPRON (LANSOPRAZOLE) [Concomitant]
  30. NITRODERM (GLYCERYL TRINITRATE) [Concomitant]
  31. TIENAM (CILASTATIN SODIUM, IMIPENEM) [Concomitant]
  32. VANCOMYCIN HYDROCHLORIDE (VANCOMYCIN HYDROCHLORIDE) [Concomitant]
  33. SOLULACT (CALCIUM CHLORIDE DIHYDRATE, POTASSIUM CHLORIDE, SODIUM CHLORIDE, SODIUM LACTATE) [Concomitant]
  34. FINIBAX (DORIPENEM) [Concomitant]
  35. LEVOFLOXACIN HYDRATE (LEVOFLOXACIN) [Concomitant]

REACTIONS (17)
  - Pneumocystis jirovecii pneumonia [None]
  - Pharyngitis [None]
  - Nasal ulcer [None]
  - Gastric ulcer [None]
  - Rash [None]
  - Rheumatoid nodule [None]
  - Erythema nodosum [None]
  - Glaucoma [None]
  - Pneumonia staphylococcal [None]
  - Mental disorder [None]
  - Decreased appetite [None]
  - Pleurisy [None]
  - Arthralgia [None]
  - Pneumocystis jirovecii pneumonia [None]
  - Ulcer [None]
  - Tubulointerstitial nephritis [None]
  - Cardiac failure acute [None]
